FAERS Safety Report 4583925-6 (Version None)
Quarter: 2005Q1

REPORT INFORMATION
  Report Type: 
  Country: None (occurrence: None)
  Receive Date: 20050216
  Receipt Date: 20041201
  Transmission Date: 20050727
  Serious: No
  Sender: FDA-Public Use
  Company Number: US-GLAXOSMITHKLINE-A0535743A

PATIENT
  Age: 83 Year
  Sex: Male
  Weight: 88.6 kg

DRUGS (7)
  1. AVODART [Suspect]
     Indication: BENIGN PROSTATIC HYPERPLASIA
     Dosage: 1CAP PER DAY
     Route: 048
     Dates: start: 20040301, end: 20040501
  2. FLOMAX [Concomitant]
     Indication: BENIGN PROSTATIC HYPERPLASIA
  3. URECHOLINE [Concomitant]
  4. MONOPRIL [Concomitant]
  5. GLYBURIDE [Concomitant]
  6. CELEBREX [Concomitant]
  7. VICODIN [Concomitant]

REACTIONS (3)
  - BREAST PAIN [None]
  - DRUG INEFFECTIVE [None]
  - GYNAECOMASTIA [None]
